FAERS Safety Report 6824086-X (Version None)
Quarter: 2010Q3

REPORT INFORMATION
  Report Type: 
  Country: None (occurrence: None)
  Receive Date: 20100708
  Receipt Date: 20061009
  Transmission Date: 20110219
  Serious: No
  Sender: FDA-Public Use
  Company Number: US-PFIZER INC-2006125955

PATIENT
  Sex: Female
  Weight: 58.97 kg

DRUGS (7)
  1. CHANTIX [Suspect]
     Indication: SMOKING CESSATION THERAPY
     Route: 048
     Dates: start: 20061003
  2. EFFEXOR [Concomitant]
  3. LEVOTHYROXINE SODIUM [Concomitant]
  4. FLUOXETINE [Concomitant]
  5. PREVACID [Concomitant]
     Indication: GASTRITIS
  6. CLONAZEPAM [Concomitant]
  7. TOPAMAX [Concomitant]

REACTIONS (2)
  - EYE IRRITATION [None]
  - NAUSEA [None]
